FAERS Safety Report 5245632-6 (Version None)
Quarter: 2007Q1

REPORT INFORMATION
  Report Type: 
  Country: None (occurrence: None)
  Receive Date: 20070223
  Receipt Date: 20070216
  Transmission Date: 20070707
  Serious: Yes (Other)
  Sender: FDA-Public Use
  Company Number: SE-ROXANE LABORATORIES, INC-2007-BP-02366RO

PATIENT
  Age: 55 Year
  Sex: Male

DRUGS (4)
  1. CYCLOPHOSPHAMIDE [Suspect]
     Indication: BONE MARROW CONDITIONING REGIMEN
     Dosage: 4100 MG X 1 DOSE
     Route: 042
  2. BUSULFAN [Suspect]
     Indication: BONE MARROW CONDITIONING REGIMEN
     Dosage: 220 MG X 1 DOSE
     Route: 042
  3. ANTITHYMOCYTE GLOBULIN [Suspect]
     Indication: BONE MARROW CONDITIONING REGIMEN
  4. MESNA [Suspect]
     Indication: BONE MARROW CONDITIONING REGIMEN

REACTIONS (5)
  - HICCUPS [None]
  - HYPONATRAEMIA [None]
  - INSOMNIA [None]
  - NAUSEA [None]
  - VOMITING [None]
